FAERS Safety Report 23142378 (Version 2)
Quarter: 2023Q4

REPORT INFORMATION
  Report Type: Report from Study
  Country: CA (occurrence: CA)
  Receive Date: 20231103
  Receipt Date: 20231106
  Transmission Date: 20240110
  Serious: Yes (Other)
  Sender: FDA-Public Use
  Company Number: CA-002147023-NVSC2023CA234718

PATIENT
  Age: 61 Year
  Sex: Male

DRUGS (3)
  1. COSENTYX [Suspect]
     Active Substance: SECUKINUMAB
     Indication: Ankylosing spondylitis
     Dosage: 300 MG, QMO
     Route: 058
     Dates: start: 20230928
  2. COSENTYX [Suspect]
     Active Substance: SECUKINUMAB
     Indication: Psoriasis
     Dosage: 300 MG, QMO
     Route: 058
     Dates: start: 20231027
  3. XARELTO [Concomitant]
     Active Substance: RIVAROXABAN
     Indication: Portal vein thrombosis
     Dosage: UNK
     Route: 048

REACTIONS (8)
  - Hypoxia [Unknown]
  - Leukocytosis [Unknown]
  - Aphthous ulcer [Recovered/Resolved]
  - Dysphagia [Recovered/Resolved]
  - Chest discomfort [Recovered/Resolved]
  - Oropharyngeal pain [Recovered/Resolved]
  - Dyspnoea [Recovered/Resolved]
  - Inappropriate schedule of product administration [Unknown]

NARRATIVE: CASE EVENT DATE: 20231013
